FAERS Safety Report 4630949-6 (Version None)
Quarter: 2005Q2

REPORT INFORMATION
  Report Type: 
  Country: None (occurrence: None)
  Receive Date: 20050406
  Receipt Date: 20050406
  Transmission Date: 20051028
  Serious: No
  Sender: FDA-Public Use
  Company Number: None

PATIENT
  Sex: Male
  Weight: 94.3 kg

DRUGS (7)
  1. DOXORUBICIN HCL [Suspect]
     Dosage: 54 MG IV
     Route: 042
     Dates: start: 20041228
  2. BLEOMYCIN [Suspect]
     Dosage: 22 U IV
     Route: 042
     Dates: start: 20041228
  3. VINBLASTINE SULFATE [Suspect]
     Dosage: 13 MG IV
     Route: 042
     Dates: start: 20041228
  4. DACARBAZINE [Suspect]
     Dosage: 817 MG IV   DAYS 1 AND 15
     Route: 042
     Dates: start: 20041228
  5. DEXAMETHASONE [Concomitant]
  6. GRANISITRON [Concomitant]
  7. METOCLOPRAMIDE [Concomitant]

REACTIONS (1)
  - BLOOD GLUCOSE DECREASED [None]
